FAERS Safety Report 10149244 (Version 3)
Quarter: 2014Q2

REPORT INFORMATION
  Report Type: Spontaneous
  Country: US (occurrence: US)
  Receive Date: 20140502
  Receipt Date: 20140619
  Transmission Date: 20141212
  Serious: Yes (Death, Hospitalization, Other)
  Sender: FDA-Public Use
  Company Number: US-JNJFOC-20140418959

PATIENT
  Age: 65 Year
  Sex: Female
  Weight: 65 kg

DRUGS (5)
  1. XARELTO [Suspect]
     Indication: CEREBROVASCULAR ACCIDENT PROPHYLAXIS
     Route: 048
     Dates: start: 20140309, end: 20140424
  2. XARELTO [Suspect]
     Indication: ATRIAL FIBRILLATION
     Route: 048
     Dates: start: 20140309, end: 20140424
  3. ASPIRIN [Suspect]
     Indication: PRODUCT USED FOR UNKNOWN INDICATION
     Route: 065
  4. TIKOSYN [Concomitant]
     Indication: ARRHYTHMIA
     Route: 065
  5. RANEXA [Concomitant]
     Route: 065

REACTIONS (3)
  - Brain stem haemorrhage [Fatal]
  - Embolism [Unknown]
  - Ischaemic cerebral infarction [Unknown]
